FAERS Safety Report 11690683 (Version 3)
Quarter: 2015Q4

REPORT INFORMATION
  Report Type: Spontaneous
  Country: GB (occurrence: GB)
  Receive Date: 20151102
  Receipt Date: 20151217
  Transmission Date: 20160304
  Serious: Yes (Other)
  Sender: FDA-Public Use
  Company Number: GB-009507513-1510GBR000912

PATIENT
  Sex: Female

DRUGS (1)
  1. NEXPLANON [Suspect]
     Active Substance: ETONOGESTREL
     Dosage: INSERTED IN THE LEFT ARM
     Route: 059
     Dates: start: 20120829

REACTIONS (8)
  - Weight loss diet [Unknown]
  - Device difficult to use [Not Recovered/Not Resolved]
  - Device kink [Not Recovered/Not Resolved]
  - Medical device complication [Not Recovered/Not Resolved]
  - Abortion spontaneous [Unknown]
  - Pregnancy with implant contraceptive [Recovered/Resolved]
  - Incorrect drug administration duration [Unknown]
  - Device dislocation [Not Recovered/Not Resolved]

NARRATIVE: CASE EVENT DATE: 2014
